FAERS Safety Report 7424301-8 (Version None)
Quarter: 2011Q2

REPORT INFORMATION
  Report Type: 
  Country: None (occurrence: None)
  Receive Date: 20110411
  Receipt Date: 20110403
  Transmission Date: 20111010
  Serious: Yes (Other)
  Sender: FDA-Public Use
  Company Number: DSU-2011-02101

PATIENT
  Sex: Female
  Weight: 61.2356 kg

DRUGS (12)
  1. AMBIEN [Concomitant]
  2. FISH OIL (FISH OIL) [Concomitant]
  3. TRILIPIX [Concomitant]
  4. MAGNESIUM (MAGNESIUM) [Concomitant]
  5. TRICOR (ADENOSINE) [Concomitant]
  6. VIVELLE-DOT [Concomitant]
  7. MIDRIN (PARACETAMOL, DICHLORALPHENAZONE) [Concomitant]
  8. CYMBALTA [Concomitant]
  9. PROVIGIL [Suspect]
     Indication: DISTURBANCE IN ATTENTION
     Dosage: PER ORAL
     Route: 048
  10. ASPIRIN [Concomitant]
  11. WELCHOL [Suspect]
     Indication: HYPERCHOLESTEROLAEMIA
     Dosage: 3750 MG (1875 MG, BID), PER ORAL
     Route: 048
  12. VITAMIN D [Concomitant]

REACTIONS (4)
  - ILL-DEFINED DISORDER [None]
  - PANCREATITIS ACUTE [None]
  - DISTURBANCE IN ATTENTION [None]
  - DRUG INTERACTION [None]
